FAERS Safety Report 11994897 (Version 2)
Quarter: 2016Q2

REPORT INFORMATION
  Report Type: Spontaneous
  Country: JP (occurrence: JP)
  Receive Date: 20160203
  Receipt Date: 20160412
  Transmission Date: 20160815
  Serious: Yes (Other)
  Sender: FDA-Public Use
  Company Number: JP-JNJFOC-20151203037

PATIENT
  Age: 41 Year
  Sex: Male
  Weight: 82 kg

DRUGS (9)
  1. ASPIRIN. [Concomitant]
     Active Substance: ASPIRIN
     Route: 048
  2. TENELIA [Concomitant]
     Active Substance: TENELIGLIPTIN
     Route: 048
     Dates: start: 20150526
  3. LANTUS [Concomitant]
     Active Substance: INSULIN GLARGINE
     Route: 051
  4. CANAGLU [Suspect]
     Active Substance: CANAGLIFLOZIN
     Indication: TYPE 2 DIABETES MELLITUS
     Route: 048
     Dates: start: 20151102
  5. EQUA [Concomitant]
     Active Substance: VILDAGLIPTIN
     Route: 065
     Dates: start: 20131118, end: 20140207
  6. HUMULIN R [Concomitant]
     Active Substance: INSULIN HUMAN
     Dosage: 4-4-4??8-10-10
     Route: 051
  7. LANTUS [Concomitant]
     Active Substance: INSULIN GLARGINE
     Route: 051
  8. EQUA [Concomitant]
     Active Substance: VILDAGLIPTIN
     Route: 065
     Dates: start: 20150428
  9. HUMULIN R [Concomitant]
     Active Substance: INSULIN HUMAN
     Route: 051

REACTIONS (1)
  - Angina pectoris [Recovered/Resolved]

NARRATIVE: CASE EVENT DATE: 20151125
